FAERS Safety Report 5972743-X (Version None)
Quarter: 2008Q4

REPORT INFORMATION
  Report Type: 
  Country: None (occurrence: None)
  Receive Date: 20081201
  Receipt Date: 20081117
  Transmission Date: 20090506
  Serious: Yes (Death, Hospitalization, Other)
  Sender: FDA-Public Use
  Company Number: PT-CELGENEUS-130-20785-08110983

PATIENT

DRUGS (1)
  1. THALIDOMIDE [Suspect]
     Indication: MULTIPLE MYELOMA
     Route: 048

REACTIONS (5)
  - BRADYARRHYTHMIA [None]
  - DISEASE PROGRESSION [None]
  - DRUG TOXICITY [None]
  - INFECTION [None]
  - NEOPLASM [None]
